FAERS Safety Report 21006337 (Version 1)
Quarter: 2022Q2

REPORT INFORMATION
  Report Type: Spontaneous
  Country: GB (occurrence: GB)
  Receive Date: 20220624
  Receipt Date: 20220624
  Transmission Date: 20220721
  Serious: Yes (Other)
  Sender: FDA-Public Use
  Company Number: GB-MHRA-MED-202206230019090040-LMQNT

PATIENT
  Sex: Female
  Weight: 102 kg

DRUGS (1)
  1. PRAMIPEXOLE [Suspect]
     Active Substance: PRAMIPEXOLE
     Indication: Restless legs syndrome
     Dates: start: 20211001

REACTIONS (2)
  - Medication error [Unknown]
  - Restless legs syndrome [Not Recovered/Not Resolved]
